APPROVED DRUG PRODUCT: HYDROCODONE BITARTRATE AND ACETAMINOPHEN
Active Ingredient: ACETAMINOPHEN; HYDROCODONE BITARTRATE
Strength: 500MG/15ML;7.5MG/15ML
Dosage Form/Route: SOLUTION;ORAL
Application: A040182 | Product #001
Applicant: PHARMACEUTICAL ASSOC INC DIV BEACH PRODUCTS
Approved: Mar 13, 1998 | RLD: No | RS: No | Type: DISCN